FAERS Safety Report 14699228 (Version 1)
Quarter: 2018Q1

REPORT INFORMATION
  Report Type: Spontaneous
  Country: US (occurrence: US)
  Receive Date: 20180330
  Receipt Date: 20180330
  Transmission Date: 20180509
  Serious: No
  Sender: FDA-Public Use
  Company Number: PHEH2018US011894

PATIENT
  Sex: Female

DRUGS (1)
  1. GLEEVEC [Suspect]
     Active Substance: IMATINIB MESYLATE
     Indication: PRODUCT USED FOR UNKNOWN INDICATION
     Route: 065

REACTIONS (7)
  - Musculoskeletal pain [Unknown]
  - Movement disorder [Unknown]
  - Gait disturbance [Unknown]
  - Arthropathy [Unknown]
  - Fatigue [Unknown]
  - Feeling abnormal [Unknown]
  - Arthralgia [Unknown]
